FAERS Safety Report 17097246 (Version 1)
Quarter: 2019Q4

REPORT INFORMATION
  Report Type: Spontaneous
  Country: US (occurrence: US)
  Receive Date: 20191104
  Receipt Date: 20191104
  Transmission Date: 20200122
  Serious: Yes (Hospitalization)
  Sender: FDA-Public Use
  Company Number: None

PATIENT
  Age: 56 Year
  Sex: Male
  Weight: 68 kg

DRUGS (13)
  1. MS CONTIN [Concomitant]
     Active Substance: MORPHINE SULFATE
  2. IPILIMUMAB 1MG/KG [Suspect]
     Active Substance: IPILIMUMAB
     Dates: start: 20181114
  3. FLAGYL [Concomitant]
     Active Substance: METRONIDAZOLE\METRONIDAZOLE HYDROCHLORIDE
  4. ELIQUIS [Concomitant]
     Active Substance: APIXABAN
  5. TYLENOL [Concomitant]
     Active Substance: ACETAMINOPHEN
  6. NIVOLUMAB 240MG [Suspect]
     Active Substance: NIVOLUMAB
     Indication: SARCOMA
     Route: 042
     Dates: start: 20181003, end: 20181114
  7. ZOFRAN [Concomitant]
     Active Substance: ONDANSETRON HYDROCHLORIDE
  8. ROXICODONE [Concomitant]
     Active Substance: OXYCODONE HYDROCHLORIDE
  9. PROCHLORPERAZINE  (COMPAZINE) [Concomitant]
  10. VOTRIENT [Concomitant]
     Active Substance: PAZOPANIB HYDROCHLORIDE
  11. IPILIMUMAB 1MG/KG [Suspect]
     Active Substance: IPILIMUMAB
     Indication: SARCOMA
     Route: 042
     Dates: start: 20181003
  12. LANOXIN [Concomitant]
     Active Substance: DIGOXIN
  13. LOPRESSOR [Concomitant]
     Active Substance: METOPROLOL TARTRATE

REACTIONS (11)
  - Impaired healing [None]
  - Paraesthesia [None]
  - Loss of personal independence in daily activities [None]
  - Metastases to central nervous system [None]
  - Fine motor skill dysfunction [None]
  - Hypoaesthesia [None]
  - Muscular weakness [None]
  - Grip strength decreased [None]
  - Cerebral haemorrhage [None]
  - Therapy cessation [None]
  - Noninfective encephalitis [None]

NARRATIVE: CASE EVENT DATE: 20191030
